FAERS Safety Report 5125693-5 (Version None)
Quarter: 2006Q3

REPORT INFORMATION
  Report Type: 
  Country: None (occurrence: None)
  Receive Date: 20060814
  Receipt Date: 20060303
  Transmission Date: 20061208
  Serious: Yes (Other)
  Sender: FDA-Public Use
  Company Number: 2004844

PATIENT
  Age: 90 Year
  Sex: Female

DRUGS (2)
  1. VISUDYNE [Suspect]
     Indication: MACULAR DEGENERATION
     Dosage: 6 MG/M^2 ONCE IV
     Route: 042
     Dates: start: 20050926, end: 20050926
  2. KENALOG [Suspect]
     Indication: MACULAR DEGENERATION
     Dates: start: 20050926, end: 20050926

REACTIONS (1)
  - VISUAL ACUITY REDUCED [None]
